FAERS Safety Report 21926722 (Version 3)
Quarter: 2025Q1

REPORT INFORMATION
  Report Type: Report from Study
  Country: BG (occurrence: BG)
  Receive Date: 20230130
  Receipt Date: 20250123
  Transmission Date: 20250409
  Serious: Yes (Hospitalization, Other)
  Sender: TEVA
  Company Number: BG-TEVA-2023-BG-2851350

PATIENT
  Age: 56 Year
  Sex: Female
  Weight: 72 kg

DRUGS (31)
  1. CARBOPLATIN [Suspect]
     Active Substance: CARBOPLATIN
     Indication: Non-small cell lung cancer metastatic
     Route: 065
     Dates: start: 20211214
  2. BEVACIZUMAB [Suspect]
     Active Substance: BEVACIZUMAB
     Indication: Non-small cell lung cancer metastatic
     Route: 065
     Dates: start: 20211214
  3. CLONIDINE HYDROCHLORIDE [Concomitant]
     Active Substance: CLONIDINE HYDROCHLORIDE
     Indication: Product used for unknown indication
     Route: 065
     Dates: start: 20220216, end: 20220216
  4. CLONIDINE HYDROCHLORIDE [Concomitant]
     Active Substance: CLONIDINE HYDROCHLORIDE
     Indication: Product used for unknown indication
     Route: 065
     Dates: start: 20230706, end: 20230706
  5. MOXONIDINE [Concomitant]
     Active Substance: MOXONIDINE
     Indication: Product used for unknown indication
     Route: 065
     Dates: start: 20230201
  6. DEXOFEN [Concomitant]
     Indication: Adverse event
     Route: 065
     Dates: start: 20230307, end: 20230307
  7. DEXOFEN [Concomitant]
     Indication: Adverse event
     Route: 065
     Dates: start: 20230302
  8. DEXOFEN [Concomitant]
     Indication: Adverse event
     Route: 065
     Dates: start: 20230302
  9. GENTAMICIN [Concomitant]
     Active Substance: GENTAMICIN
     Indication: Prophylaxis
     Route: 065
     Dates: start: 20220414, end: 20220416
  10. BRONCHOLYTIN [Concomitant]
     Indication: Cough
     Route: 065
     Dates: start: 20220616
  11. BROMHEXINE [Concomitant]
     Active Substance: BROMHEXINE
     Indication: Product used for unknown indication
     Route: 065
     Dates: start: 20220322, end: 20220324
  12. BISOPROLOL FUMARATE [Concomitant]
     Active Substance: BISOPROLOL FUMARATE
     Indication: Product used for unknown indication
     Route: 065
     Dates: start: 20230131
  13. BISOPROLOL FUMARATE [Concomitant]
     Active Substance: BISOPROLOL FUMARATE
     Indication: Product used for unknown indication
     Route: 065
     Dates: start: 20230201
  14. METRONIDAZOLE [Concomitant]
     Active Substance: METRONIDAZOLE
     Indication: Prophylaxis
     Route: 065
     Dates: start: 20220414, end: 20220416
  15. PACLITAXEL [Suspect]
     Active Substance: PACLITAXEL
     Indication: Non-small cell lung cancer metastatic
     Route: 065
     Dates: start: 20211214
  16. TERCEF [Concomitant]
     Indication: Prophylaxis
     Route: 065
     Dates: start: 20220414, end: 20220416
  17. ASPIRIN [Concomitant]
     Active Substance: ASPIRIN
     Indication: Product used for unknown indication
     Route: 065
  18. DEXTROSE [Concomitant]
     Active Substance: DEXTROSE MONOHYDRATE
     Indication: Prophylaxis
     Route: 065
     Dates: start: 20220414, end: 20220416
  19. DEXTROSE [Concomitant]
     Active Substance: DEXTROSE MONOHYDRATE
     Indication: Prophylaxis
     Route: 065
     Dates: start: 20220322, end: 20220324
  20. ATEZOLIZUMAB [Suspect]
     Active Substance: ATEZOLIZUMAB
     Indication: Non-small cell lung cancer metastatic
     Dosage: DOSAGE TEXT: MOST RECENT DATE OF ADMINISTRATION PRIOR TO SAE: 16/FEB/2022
     Route: 042
     Dates: start: 20211214
  21. AVANOR [Concomitant]
     Indication: Product used for unknown indication
     Route: 065
     Dates: start: 20220927
  22. VIVACE [Concomitant]
     Indication: Product used for unknown indication
     Route: 065
     Dates: start: 20220927
  23. EZEN [Concomitant]
     Indication: Bone pain
     Dosage: DOSAGE TEXT: QD
     Route: 065
     Dates: start: 20220927
  24. PANTOPRAZOLE SODIUM [Concomitant]
     Active Substance: PANTOPRAZOLE SODIUM
     Indication: Prophylaxis
     Route: 065
     Dates: start: 20220927
  25. CLOPIDOGREL [Concomitant]
     Active Substance: CLOPIDOGREL BISULFATE
     Indication: Product used for unknown indication
     Route: 065
  26. ANAFTIN [Concomitant]
     Indication: Product used for unknown indication
     Route: 065
     Dates: start: 20211220, end: 20220204
  27. FAMOTIDINE [Concomitant]
     Active Substance: FAMOTIDINE
     Indication: Prophylaxis
     Route: 065
     Dates: start: 20220414, end: 20220416
  28. CIPROFLOXACIN [Concomitant]
     Active Substance: CIPROFLOXACIN
     Indication: Prophylaxis
     Route: 065
     Dates: start: 20220927, end: 20221003
  29. GEROXYNAL [Concomitant]
     Indication: Adverse event
     Route: 065
     Dates: start: 20230209, end: 20230301
  30. ENTEROL [Concomitant]
     Indication: Prophylaxis
     Route: 065
     Dates: start: 20220927, end: 20221003
  31. CIPROFLOXACIN [Concomitant]
     Active Substance: CIPROFLOXACIN
     Indication: Prophylaxis
     Route: 065
     Dates: start: 20220927, end: 20221003

REACTIONS (14)
  - Dyspnoea [Recovered/Resolved]
  - Chest pain [Recovered/Resolved]
  - Oropharyngeal pain [Recovered/Resolved]
  - Bone pain [Recovered/Resolved]
  - Folliculitis [Recovered/Resolved]
  - Hypertension [Recovered/Resolved]
  - Aphthous ulcer [Recovered/Resolved]
  - Headache [Recovered/Resolved]
  - Dizziness [Recovered/Resolved]
  - Cough [Not Recovered/Not Resolved]
  - Alopecia [Recovered/Resolved]
  - Neuropathy peripheral [Recovered/Resolved]
  - Dysphagia [Recovered/Resolved]
  - Dysphonia [Recovered/Resolved]

NARRATIVE: CASE EVENT DATE: 20211220
